FAERS Safety Report 5728487-2 (Version None)
Quarter: 2008Q2

REPORT INFORMATION
  Report Type: 
  Country: None (occurrence: None)
  Receive Date: 20080506
  Receipt Date: 20080429
  Transmission Date: 20081010
  Serious: Yes (Other)
  Sender: FDA-Public Use
  Company Number: US-ROCHE-550043

PATIENT
  Age: 75 Year
  Sex: Male

DRUGS (2)
  1. TAMIFLU [Suspect]
     Indication: PROPHYLAXIS
     Route: 065
     Dates: end: 20080229
  2. COUMADIN [Suspect]
     Indication: DRUG USE FOR UNKNOWN INDICATION
     Route: 065
     Dates: end: 20080229

REACTIONS (1)
  - INTERNATIONAL NORMALISED RATIO INCREASED [None]
